FAERS Safety Report 13541203 (Version 1)
Quarter: 2017Q2

REPORT INFORMATION
  Report Type: Spontaneous
  Country: US (occurrence: US)
  Receive Date: 20170512
  Receipt Date: 20170512
  Transmission Date: 20170830
  Serious: Yes (Other)
  Sender: FDA-Public Use
  Company Number: US-PFIZER INC-2016389119

PATIENT
  Age: 57 Year
  Sex: Female
  Weight: 65 kg

DRUGS (3)
  1. ESTRING [Suspect]
     Active Substance: ESTRADIOL
     Indication: ATROPHIC VULVOVAGINITIS
     Dosage: 1 DF, EVERY 3 MONTHS (ONE RING EVERY 90 DAYS)
     Route: 067
     Dates: start: 201307
  2. ESTRING [Suspect]
     Active Substance: ESTRADIOL
     Indication: ATROPHIC VULVOVAGINITIS
     Dosage: 1 DF, EVERY 3 MONTHS (2MG ONE RING INSERTED VAGINALLY EVERY 90 DAYS)
     Route: 067
     Dates: start: 20131021
  3. METFORMIN [Concomitant]
     Active Substance: METFORMIN HYDROCHLORIDE
     Indication: DIABETES MELLITUS
     Dosage: 4 DF, DAILY (AT 500MG FOUR TABLETS BY MOUTH DAILY)
     Route: 048
     Dates: start: 201601

REACTIONS (2)
  - Drug dose omission [Not Recovered/Not Resolved]
  - Smear cervix abnormal [Unknown]

NARRATIVE: CASE EVENT DATE: 2016
